FAERS Safety Report 10752483 (Version 2)
Quarter: 2015Q1

REPORT INFORMATION
  Report Type: Report from Study
  Country: FR (occurrence: FR)
  Receive Date: 20150130
  Receipt Date: 20150226
  Transmission Date: 20150721
  Serious: Yes (Hospitalization)
  Sender: FDA-Public Use
  Company Number: PHHO2015FR001438

PATIENT
  Age: 80 Year
  Sex: Male
  Weight: 76 kg

DRUGS (6)
  1. BYL719 [Suspect]
     Active Substance: ALPELISIB
     Indication: GASTROINTESTINAL STROMAL TUMOUR
     Dosage: 350 MG, UNK
     Route: 048
     Dates: start: 20140828, end: 20140912
  2. BYL719 [Suspect]
     Active Substance: ALPELISIB
     Dosage: 300 MG, UNK
     Route: 048
     Dates: start: 20140919, end: 20150117
  3. BYL719 [Suspect]
     Active Substance: ALPELISIB
     Dosage: 300 MG, UNK
     Route: 048
     Dates: start: 20150123
  4. STI571 [Suspect]
     Active Substance: IMATINIB MESYLATE
     Indication: GASTROINTESTINAL STROMAL TUMOUR
     Dosage: 400 MG, UNK
     Route: 048
     Dates: start: 20140828, end: 20140912
  5. STI571 [Suspect]
     Active Substance: IMATINIB MESYLATE
     Dosage: 300 MG, UNK
     Route: 048
     Dates: start: 20140919, end: 20150117
  6. STI571 [Suspect]
     Active Substance: IMATINIB MESYLATE
     Dosage: 300 MG, UNK
     Route: 048
     Dates: start: 20150123

REACTIONS (1)
  - General physical health deterioration [Recovered/Resolved]

NARRATIVE: CASE EVENT DATE: 20150116
